FAERS Safety Report 7137113-X (Version None)
Quarter: 2010Q4

REPORT INFORMATION
  Report Type: 
  Country: None (occurrence: None)
  Receive Date: 20101206
  Receipt Date: 20070307
  Transmission Date: 20110411
  Serious: Yes (Death)
  Sender: FDA-Public Use
  Company Number: US-ACTELION-A-US2006-14524

PATIENT

DRUGS (18)
  1. ILOPROST INHALATION SOLUTION 5UG US [Suspect]
     Indication: PULMONARY HYPERTENSION
     Dosage: 5 UG, 6-X A DAY
     Route: 055
     Dates: start: 20060224
  2. ILOPROST INHALATION SOLUTION 5UG US [Suspect]
     Dosage: 2.5 UG, SINGLE
     Route: 055
     Dates: start: 20060224, end: 20060224
  3. ACTIMMUNE [Concomitant]
  4. PLAVIX [Concomitant]
  5. FUROSEMIDE [Concomitant]
  6. LOVASTATIN [Concomitant]
  7. POTASSIUM CHLORIDE [Concomitant]
  8. RANITIDINE [Concomitant]
  9. METOPROLOL [Concomitant]
  10. NIASPAN [Concomitant]
  11. LISINOPRIL [Concomitant]
  12. CLONIDINE [Concomitant]
  13. ISOSORBIDE DINITRATE [Concomitant]
  14. SPIRONOLACTONE [Concomitant]
  15. NIFEDIPINE [Concomitant]
  16. NOVOLOG [Concomitant]
  17. LANTUS [Concomitant]
  18. PROTONIX [Concomitant]

REACTIONS (4)
  - COUGH [None]
  - DEATH [None]
  - NAUSEA [None]
  - THIRST [None]
